FAERS Safety Report 4876012-0 (Version None)
Quarter: 2005Q4

REPORT INFORMATION
  Report Type: 
  Country: None (occurrence: None)
  Receive Date: 20051206
  Receipt Date: 20051026
  Transmission Date: 20060501
  Serious: No
  Sender: FDA-Public Use
  Company Number: USA0510112110

PATIENT
  Sex: Female

DRUGS (2)
  1. CYMBALTA [Suspect]
     Indication: PAIN
     Dosage: 60 MG
  2. TRAMADOL HCL [Concomitant]

REACTIONS (2)
  - DEPRESSION [None]
  - MOOD ALTERED [None]
